FAERS Safety Report 13695435 (Version 3)
Quarter: 2017Q4

REPORT INFORMATION
  Report Type: Report from Study
  Country: US (occurrence: US)
  Receive Date: 20170627
  Receipt Date: 20171031
  Transmission Date: 20180320
  Serious: Yes (Hospitalization)
  Sender: FDA-Public Use
  Company Number: US-BAYER-2017-078054

PATIENT
  Age: 80 Year
  Sex: Female

DRUGS (2)
  1. ADEMPAS [Suspect]
     Active Substance: RIOCIGUAT
     Indication: PULMONARY ARTERIAL HYPERTENSION
     Dosage: UNK
  2. ADEMPAS [Suspect]
     Active Substance: RIOCIGUAT
     Indication: PULMONARY ARTERIAL HYPERTENSION
     Dosage: 1 MG, TID
     Route: 048
     Dates: start: 20160824

REACTIONS (10)
  - Drug dose omission [None]
  - Peripheral swelling [None]
  - Cerebrovascular accident [None]
  - Vomiting [None]
  - Hypotension [None]
  - Constipation [None]
  - Eyelid oedema [Recovering/Resolving]
  - Seizure [None]
  - Loss of consciousness [None]
  - Dyspepsia [None]

NARRATIVE: CASE EVENT DATE: 20170316
